FAERS Safety Report 19535110 (Version 1)
Quarter: 2021Q3

REPORT INFORMATION
  Report Type: Spontaneous
  Country: NL (occurrence: NL)
  Receive Date: 20210713
  Receipt Date: 20210713
  Transmission Date: 20211014
  Serious: Yes (Hospitalization)
  Sender: FDA-Public Use
  Company Number: NL-009507513-1102NLD00015

PATIENT
  Age: 63 Year
  Sex: Female

DRUGS (6)
  1. ENALAPRIL MALEATE. [Concomitant]
     Active Substance: ENALAPRIL MALEATE
     Dosage: 1 X 1 TABLET (1 DOSAGE FORM, 1 IN 1 D)
     Route: 048
     Dates: start: 19990101
  2. LIPITOR [Concomitant]
     Active Substance: ATORVASTATIN CALCIUM
     Dosage: 1 X 1 TABLET (1 DOSAGE FORM, 1 IN 1 )
  3. METFORMIN [Concomitant]
     Active Substance: METFORMIN HYDROCHLORIDE
     Dosage: 10 MG, QD
     Dates: start: 19990101
  4. GLIMEPIRIDE. [Concomitant]
     Active Substance: GLIMEPIRIDE
     Dosage: 1 X 1 TABLET (1 DOSAGE FORM, 1 IN 1 D)
     Route: 048
     Dates: start: 20090101
  5. DORZOLAMIDE HYDROCHLORIDE (+) TIMOLOL MALEATE [Suspect]
     Active Substance: DORZOLAMIDE HYDROCHLORIDE\TIMOLOL MALEATE
     Indication: INTRAOCULAR PRESSURE INCREASED
     Dosage: 2 X DAILY IN BOTH EYES (2 DOSAGE FORMS, 2 IN 1 D)
     Route: 047
     Dates: start: 20100825, end: 201101
  6. METFORMIN [Concomitant]
     Active Substance: METFORMIN HYDROCHLORIDE
     Dosage: 3 X 1000MG (3000 MG, 3 IN 1 D)
     Dates: start: 2001

REACTIONS (2)
  - Therapeutic response unexpected [Recovering/Resolving]
  - Intraocular pressure increased [Recovering/Resolving]

NARRATIVE: CASE EVENT DATE: 201012
